FAERS Safety Report 6260445-4 (Version None)
Quarter: 2009Q3

REPORT INFORMATION
  Report Type: 
  Country: None (occurrence: None)
  Receive Date: 20090708
  Receipt Date: 20090630
  Transmission Date: 20100115
  Serious: Yes (Hospitalization)
  Sender: FDA-Public Use
  Company Number: US-JNJFOC-20090700251

PATIENT
  Age: 31 Year
  Sex: Female

DRUGS (2)
  1. ACETAMINIOPHEN [Suspect]
  2. ACETAMINIOPHEN [Suspect]
     Indication: DRUG USE FOR UNKNOWN INDICATION
     Dosage: 32,500 - 39,000MG

REACTIONS (2)
  - INTENTIONAL OVERDOSE [None]
  - SUICIDE ATTEMPT [None]
